FAERS Safety Report 6734642-5 (Version None)
Quarter: 2010Q2

REPORT INFORMATION
  Report Type: 
  Country: None (occurrence: None)
  Receive Date: 20100519
  Receipt Date: 20100512
  Transmission Date: 20101027
  Serious: Yes (Death)
  Sender: FDA-Public Use
  Company Number: TPA2010A02815

PATIENT
  Age: 76 Year
  Sex: Female
  Weight: 96.1626 kg

DRUGS (9)
  1. ULORIC [Suspect]
     Indication: GOUT
     Dosage: 40 MG, 1 IN 1 D, PER ORAL
     Route: 048
     Dates: start: 20091101
  2. ZOCOR [Concomitant]
  3. PROCRIT [Concomitant]
  4. LANTUS [Concomitant]
  5. CLONIDINE [Concomitant]
  6. CARDURA [Concomitant]
  7. HYDRALAZINE HCL [Concomitant]
  8. COREG [Concomitant]
  9. LASIX [Concomitant]

REACTIONS (1)
  - DEATH [None]
